FAERS Safety Report 4525782-X (Version None)
Quarter: 2004Q4

REPORT INFORMATION
  Report Type: 
  Country: None (occurrence: None)
  Receive Date: 20041116
  Receipt Date: 20040920
  Transmission Date: 20050328
  Serious: Yes (Hospitalization)
  Sender: FDA-Public Use
  Company Number: S04-USA-06242-01

PATIENT
  Age: 80 Year
  Sex: Female

DRUGS (12)
  1. NAMENDA [Suspect]
     Indication: DEMENTIA ALZHEIMER'S TYPE
     Dosage: 20 MG QD PO
     Route: 048
     Dates: start: 20040217, end: 20040416
  2. NAMENDA [Suspect]
     Indication: DEMENTIA ALZHEIMER'S TYPE
     Dosage: 5 MG QD PO
     Route: 048
     Dates: start: 20040127, end: 20040202
  3. NAMENDA [Suspect]
     Indication: DEMENTIA ALZHEIMER'S TYPE
     Dosage: 10 MG QD PO
     Route: 048
     Dates: start: 20040203, end: 20040209
  4. NAMENDA [Suspect]
     Indication: DEMENTIA ALZHEIMER'S TYPE
     Dosage: 15 MG QD PO
     Route: 048
     Dates: start: 20040210, end: 20040216
  5. EXELON [Concomitant]
  6. PLAQUENIL (HYDROCHLOROQUNE SULFATE) [Concomitant]
  7. VASOTEC [Concomitant]
  8. DIGOXIN [Concomitant]
  9. NORVASC [Concomitant]
  10. FOSAMAX [Concomitant]
  11. SYNTHROUD (LEVOTHYROXINE SODIUM) [Concomitant]
  12. ASPIRIN [Concomitant]

REACTIONS (4)
  - ANAEMIA [None]
  - BLOOD PRESSURE INCREASED [None]
  - HYPONATRAEMIA [None]
  - WHITE BLOOD CELL COUNT INCREASED [None]
